FAERS Safety Report 7898250-5 (Version None)
Quarter: 2011Q4

REPORT INFORMATION
  Report Type: 
  Country: None (occurrence: None)
  Receive Date: 20111107
  Receipt Date: 20111026
  Transmission Date: 20120403
  Serious: Yes (Other)
  Sender: FDA-Public Use
  Company Number: US-GLAXOSMITHKLINE-A0951937A

PATIENT
  Age: 76 Year
  Sex: Male

DRUGS (2)
  1. PROMACTA [Suspect]
     Indication: IDIOPATHIC THROMBOCYTOPENIC PURPURA
     Dosage: 50MG PER DAY
     Dates: start: 20101101
  2. CORTICOSTEROIDS [Concomitant]
     Indication: IDIOPATHIC THROMBOCYTOPENIC PURPURA
     Dates: start: 20100921, end: 20101001

REACTIONS (4)
  - APPENDICITIS PERFORATED [None]
  - BLOOD PRODUCT TRANSFUSION DEPENDENT [None]
  - DISSEMINATED TUBERCULOSIS [None]
  - HOSPICE CARE [None]
